FAERS Safety Report 6872161-6 (Version None)
Quarter: 2010Q3

REPORT INFORMATION
  Report Type: 
  Country: None (occurrence: None)
  Receive Date: 20100723
  Receipt Date: 20100720
  Transmission Date: 20110219
  Serious: Yes (Death, Life-Threatening, Hospitalization)
  Sender: FDA-Public Use
  Company Number: JP-ELI_LILLY_AND_COMPANY-JP201004001417

PATIENT
  Sex: Male
  Weight: 71 kg

DRUGS (14)
  1. GEMZAR [Suspect]
     Indication: PANCREATIC CARCINOMA STAGE IV
     Dosage: 1500 MG, OTHER
     Route: 042
     Dates: start: 20090909, end: 20090909
  2. GEMZAR [Suspect]
     Dosage: 1350 MG, OTHER
     Route: 042
     Dates: start: 20090916, end: 20090916
  3. GEMZAR [Suspect]
     Dosage: 1200 MG, OTHER
     Route: 042
     Dates: start: 20091008, end: 20091008
  4. GEMZAR [Suspect]
     Dosage: 1000 MG, OTHER
     Route: 042
     Dates: start: 20091015, end: 20091015
  5. GEMZAR [Suspect]
     Dosage: 1000 MG, OTHER
     Route: 042
     Dates: start: 20091105, end: 20091105
  6. GEMZAR [Suspect]
     Dosage: 900 MG, OTHER
     Route: 042
     Dates: start: 20091112, end: 20091112
  7. GEMZAR [Suspect]
     Dosage: 800 MG, OTHER
     Route: 042
     Dates: start: 20091203, end: 20091203
  8. GEMZAR [Suspect]
     Dosage: 400 MG, OTHER
     Route: 042
     Dates: start: 20091210, end: 20091210
  9. GEMZAR [Suspect]
     Dosage: 800 MG, OTHER
     Route: 042
     Dates: start: 20100209, end: 20100209
  10. GEMZAR [Suspect]
     Dosage: 600 MG, OTHER
     Route: 042
     Dates: start: 20100216, end: 20100223
  11. ELPLAT [Concomitant]
     Indication: PANCREATIC CARCINOMA STAGE IV
     Dosage: 135 MG, OTHER
     Route: 042
     Dates: start: 20100209, end: 20100209
  12. ELPLAT [Concomitant]
     Dosage: 120 MG, OTHER
     Route: 042
     Dates: start: 20100223, end: 20100223
  13. RAMELTEON [Concomitant]
     Indication: PROPHYLAXIS
     Dosage: 0.3 MG, OTHER
     Route: 042
     Dates: start: 20100209, end: 20100301
  14. DEXART [Concomitant]
     Indication: PROPHYLAXIS
     Dosage: 13.2 MG, OTHER
     Route: 042
     Dates: start: 20100209, end: 20100301

REACTIONS (3)
  - CHOLANGITIS SCLEROSING [None]
  - JAUNDICE [None]
  - PANCREATIC CARCINOMA [None]
